APPROVED DRUG PRODUCT: NIFEDIPINE
Active Ingredient: NIFEDIPINE
Strength: 10MG
Dosage Form/Route: CAPSULE;ORAL
Application: A072781 | Product #001 | TE Code: AB
Applicant: ACELLA PHARMACEUTICALS LLC
Approved: Jul 30, 1993 | RLD: No | RS: No | Type: RX